FAERS Safety Report 11541174 (Version 2)
Quarter: 2015Q4

REPORT INFORMATION
  Report Type: Report from Study
  Country: US (occurrence: US)
  Receive Date: 20150923
  Receipt Date: 20151001
  Transmission Date: 20160304
  Serious: Yes (Other)
  Sender: FDA-Public Use
  Company Number: US-GILEAD-2015-0172906

PATIENT
  Age: 33 Year
  Sex: Female
  Weight: 57.7 kg

DRUGS (2)
  1. AMBRISENTAN [Suspect]
     Active Substance: AMBRISENTAN
     Indication: PULMONARY HYPERTENSION
     Dosage: 10 MG, QD
     Route: 065
     Dates: start: 20091224
  2. AMBRISENTAN [Suspect]
     Active Substance: AMBRISENTAN
     Indication: HEART DISEASE CONGENITAL

REACTIONS (2)
  - Exposure during pregnancy [Recovered/Resolved]
  - Abortion induced [Recovered/Resolved]
